FAERS Safety Report 9282626 (Version 2)
Quarter: 2013Q3

REPORT INFORMATION
  Report Type: Spontaneous
  Country: US (occurrence: US)
  Receive Date: 20130510
  Receipt Date: 20130730
  Transmission Date: 20140515
  Serious: Yes (Death)
  Sender: FDA-Public Use
  Company Number: US-BAYER-2013-056760

PATIENT
  Age: 33 Year
  Sex: Female
  Weight: 113.38 kg

DRUGS (6)
  1. YAZ [Suspect]
     Indication: CONTRACEPTION
     Dosage: UNK
     Dates: start: 200403, end: 201004
  2. YASMIN [Suspect]
     Indication: CONTRACEPTION
     Dosage: UNK
     Dates: start: 200403, end: 201004
  3. PHENERGAN [Concomitant]
     Dosage: 25 MG, UNK
     Route: 048
     Dates: start: 20100210
  4. ALEVE [Concomitant]
     Dosage: OCCASIONAL
     Route: 048
  5. PRILOSEC [Concomitant]
     Indication: DYSPEPSIA
     Dosage: 1 DAILY
     Route: 048
  6. ORTHO TRI-CYCLEN [Concomitant]

REACTIONS (2)
  - Pulmonary embolism [Fatal]
  - Deep vein thrombosis [Fatal]
